FAERS Safety Report 8316753-6 (Version None)
Quarter: 2012Q2

REPORT INFORMATION
  Report Type: 
  Country: None (occurrence: None)
  Receive Date: 20120427
  Receipt Date: 20120419
  Transmission Date: 20120825
  Serious: Yes (Hospitalization)
  Sender: FDA-Public Use
  Company Number: US-BAYER-2012-028612

PATIENT
  Age: 18 Year
  Sex: Female
  Weight: 59 kg

DRUGS (11)
  1. MOTRIN [Concomitant]
     Indication: HEADACHE
     Dosage: UNK UNK, PRN
  2. STOOL SOFTENER [Concomitant]
  3. MULTI-VITAMIN [Concomitant]
     Dosage: UNK UNK, PRN
  4. NAPROXEN (ALEVE) [Concomitant]
     Indication: HEADACHE
     Dosage: UNK UNK, PRN
  5. PROTONIX [Concomitant]
     Dosage: 40 MG, QD
     Route: 048
  6. YAZ [Suspect]
     Indication: ACNE
     Dosage: UNK
     Route: 048
     Dates: start: 20090128, end: 20100818
  7. MAXIPIME [Concomitant]
     Indication: PNEUMONIA
  8. MOTRIN [Concomitant]
     Indication: PAIN
  9. IBUPROFEN (ADVIL) [Concomitant]
     Indication: HEADACHE
     Dosage: UNK UNK, PRN
  10. IBUPROFEN (ADVIL) [Concomitant]
     Indication: PAIN
  11. NAPROXEN (ALEVE) [Concomitant]
     Indication: PAIN

REACTIONS (8)
  - PULMONARY EMBOLISM [None]
  - ANXIETY [None]
  - INJURY [None]
  - PAIN [None]
  - PALPITATIONS [None]
  - GENERAL PHYSICAL HEALTH DETERIORATION [None]
  - DEPRESSED MOOD [None]
  - EMOTIONAL DISTRESS [None]
